FAERS Safety Report 18338527 (Version 2)
Quarter: 2020Q4

REPORT INFORMATION
  Report Type: Spontaneous
  Country: US (occurrence: US)
  Receive Date: 20201002
  Receipt Date: 20201006
  Transmission Date: 20210113
  Serious: Yes (Other)
  Sender: FDA-Public Use
  Company Number: US-PFIZER INC-03H-163-0230891-00

PATIENT
  Age: 6 Week
  Sex: Male

DRUGS (2)
  1. MEPERIDINE HCL [Suspect]
     Active Substance: MEPERIDINE HYDROCHLORIDE
     Indication: PERIOPERATIVE ANALGESIA
     Dosage: 1 MG/KG, TWO INFUSIONS
     Route: 042
  2. ERYTHROMYCIN. [Concomitant]
     Active Substance: ERYTHROMYCIN
     Dosage: UNK

REACTIONS (5)
  - Dyskinesia [Recovered/Resolved]
  - Dystonia [Recovered/Resolved]
  - Tremor [Recovered/Resolved]
  - Neurotoxicity [Recovered/Resolved]
  - Hyperreflexia [Recovered/Resolved]
